FAERS Safety Report 17676537 (Version 5)
Quarter: 2021Q2

REPORT INFORMATION
  Report Type: Report from Study
  Country: US (occurrence: US)
  Receive Date: 20200416
  Receipt Date: 20210626
  Transmission Date: 20210716
  Serious: Yes (Other)
  Sender: FDA-Public Use
  Company Number: NVSC2020US095623

PATIENT
  Age: 32 Year
  Sex: Male

DRUGS (1)
  1. COSENTYX [Suspect]
     Active Substance: SECUKINUMAB
     Indication: PRODUCT USED FOR UNKNOWN INDICATION
     Dosage: 300 MG/KG, Q4W
     Route: 065
     Dates: start: 20181010

REACTIONS (3)
  - Folliculitis [Unknown]
  - Staphylococcal infection [Unknown]
  - Furuncle [Unknown]

NARRATIVE: CASE EVENT DATE: 202003
